FAERS Safety Report 6335344-X (Version None)
Quarter: 2009Q3

REPORT INFORMATION
  Report Type: 
  Country: None (occurrence: None)
  Receive Date: 20090831
  Receipt Date: 20090819
  Transmission Date: 20100115
  Serious: Yes (Hospitalization)
  Sender: FDA-Public Use
  Company Number: SE-ELI_LILLY_AND_COMPANY-SE200908003924

PATIENT
  Sex: Male

DRUGS (4)
  1. STRATTERA [Suspect]
     Indication: ATTENTION DEFICIT/HYPERACTIVITY DISORDER
     Dosage: 50 MG, UNKNOWN
     Route: 065
     Dates: start: 20071001
  2. STRATTERA [Suspect]
     Dosage: 60 MG, UNKNOWN
     Route: 065
     Dates: end: 20080401
  3. STRATTERA [Suspect]
     Dosage: 50 MG, UNKNOWN
     Route: 065
     Dates: start: 20080401, end: 20090810
  4. STRATTERA [Suspect]
     Dosage: 25 MG, OTHER
     Route: 065
     Dates: start: 20090801

REACTIONS (3)
  - AGGRESSION [None]
  - INTENTIONAL OVERDOSE [None]
  - SUICIDE ATTEMPT [None]
